FAERS Safety Report 23573647 (Version 1)
Quarter: 2024Q1

REPORT INFORMATION
  Report Type: Spontaneous
  Country: CN (occurrence: CN)
  Receive Date: 20240228
  Receipt Date: 20240228
  Transmission Date: 20240410
  Serious: Yes (Hospitalization)
  Sender: FDA-Public Use
  Company Number: CN-HALEON-CNCH2024APC009456

PATIENT

DRUGS (2)
  1. IBUPROFEN [Suspect]
     Active Substance: IBUPROFEN
     Indication: Pyrexia
     Dosage: 1 DF, QD
     Route: 048
     Dates: start: 20230801, end: 20230801
  2. ACETAMINOPHEN [Suspect]
     Active Substance: ACETAMINOPHEN
     Indication: Pyrexia
     Dosage: 2 DF, QD
     Route: 048
     Dates: start: 20230801, end: 20230801

REACTIONS (8)
  - Drug eruption [Unknown]
  - Erythema [Unknown]
  - Rash papular [Unknown]
  - Rash maculo-papular [Unknown]
  - Pruritus [Unknown]
  - Oropharyngeal pain [Unknown]
  - Rash [Unknown]
  - Inappropriate schedule of product administration [Unknown]
